FAERS Safety Report 25710028 (Version 1)
Quarter: 2025Q3

REPORT INFORMATION
  Report Type: Spontaneous
  Country: CA (occurrence: CA)
  Receive Date: 20250821
  Receipt Date: 20250821
  Transmission Date: 20251021
  Serious: Yes (Death, Other)
  Sender: BRISTOL-MYERS SQUIBB COMPANY
  Company Number: CA-BRISTOL-MYERS SQUIBB COMPANY-2025-116189

PATIENT
  Sex: Female

DRUGS (103)
  1. ORENCIA [Suspect]
     Active Substance: ABATACEPT
     Indication: Product used for unknown indication
     Route: 058
  2. ORENCIA [Suspect]
     Active Substance: ABATACEPT
     Route: 058
  3. ORENCIA [Suspect]
     Active Substance: ABATACEPT
     Route: 058
  4. ORENCIA [Suspect]
     Active Substance: ABATACEPT
     Route: 058
  5. ORENCIA [Suspect]
     Active Substance: ABATACEPT
     Indication: Product used for unknown indication
     Route: 042
  6. ORENCIA [Suspect]
     Active Substance: ABATACEPT
     Route: 042
  7. ORENCIA [Suspect]
     Active Substance: ABATACEPT
     Route: 042
  8. ORENCIA [Suspect]
     Active Substance: ABATACEPT
     Indication: Product used for unknown indication
  9. ORENCIA [Suspect]
     Active Substance: ABATACEPT
     Route: 053
  10. ORENCIA [Suspect]
     Active Substance: ABATACEPT
  11. ORENCIA [Suspect]
     Active Substance: ABATACEPT
  12. TRIAMCINOLONE ACETONIDE [Suspect]
     Active Substance: TRIAMCINOLONE ACETONIDE
     Indication: Product used for unknown indication
     Route: 014
  13. DICLOFENAC [Concomitant]
     Active Substance: DICLOFENAC
     Indication: Product used for unknown indication
  14. DICLOFENAC [Concomitant]
     Active Substance: DICLOFENAC
  15. DICLOFENAC POTASSIUM [Concomitant]
     Active Substance: DICLOFENAC POTASSIUM
     Indication: Product used for unknown indication
  16. MESALAMINE [Concomitant]
     Active Substance: MESALAMINE
     Indication: Product used for unknown indication
  17. METHOTREXATE [Concomitant]
     Active Substance: METHOTREXATE
     Indication: Product used for unknown indication
     Route: 048
  18. METHOTREXATE [Concomitant]
     Active Substance: METHOTREXATE
     Route: 048
  19. METHOTREXATE [Concomitant]
     Active Substance: METHOTREXATE
     Route: 016
  20. METHOTREXATE [Concomitant]
     Active Substance: METHOTREXATE
     Route: 048
  21. METHOTREXATE [Concomitant]
     Active Substance: METHOTREXATE
  22. METHOTREXATE [Concomitant]
     Active Substance: METHOTREXATE
     Route: 058
  23. METHOTREXATE [Concomitant]
     Active Substance: METHOTREXATE
     Route: 048
  24. METHOTREXATE [Concomitant]
     Active Substance: METHOTREXATE
     Route: 048
  25. METHOTREXATE [Concomitant]
     Active Substance: METHOTREXATE
     Route: 013
  26. METHOTREXATE [Concomitant]
     Active Substance: METHOTREXATE
     Route: 048
  27. METHOTREXATE [Concomitant]
     Active Substance: METHOTREXATE
     Route: 048
  28. METHOTREXATE [Concomitant]
     Active Substance: METHOTREXATE
  29. METHOTREXATE [Concomitant]
     Active Substance: METHOTREXATE
     Route: 058
  30. METHOTREXATE [Concomitant]
     Active Substance: METHOTREXATE
     Route: 048
  31. METHOTREXATE [Concomitant]
     Active Substance: METHOTREXATE
     Route: 013
  32. METHYLPREDNISOLONE SODIUM SUCCINATE [Concomitant]
     Active Substance: METHYLPREDNISOLONE SODIUM SUCCINATE
     Indication: Product used for unknown indication
     Route: 048
  33. MORPHINE SULFATE [Concomitant]
     Active Substance: MORPHINE SULFATE
     Indication: Product used for unknown indication
  34. NAPROXEN SODIUM [Concomitant]
     Active Substance: NAPROXEN SODIUM
     Indication: Product used for unknown indication
  35. NITROFURAZONE [Concomitant]
     Active Substance: NITROFURAZONE
     Indication: Product used for unknown indication
     Route: 048
  36. NITROFURAZONE [Concomitant]
     Active Substance: NITROFURAZONE
     Route: 048
  37. OTEZLA [Concomitant]
     Active Substance: APREMILAST
     Indication: Product used for unknown indication
     Route: 048
  38. OTEZLA [Concomitant]
     Active Substance: APREMILAST
     Route: 048
  39. OTEZLA [Concomitant]
     Active Substance: APREMILAST
  40. OTEZLA [Concomitant]
     Active Substance: APREMILAST
  41. OXYCODONE [Concomitant]
     Active Substance: OXYCODONE
     Indication: Product used for unknown indication
  42. PHTHALYLSULFATHIAZOLE [Concomitant]
     Active Substance: PHTHALYLSULFATHIAZOLE
     Indication: Product used for unknown indication
     Route: 048
  43. PHTHALYLSULFATHIAZOLE [Concomitant]
     Active Substance: PHTHALYLSULFATHIAZOLE
     Route: 048
  44. PHTHALYLSULFATHIAZOLE [Concomitant]
     Active Substance: PHTHALYLSULFATHIAZOLE
     Route: 016
  45. PHTHALYLSULFATHIAZOLE [Concomitant]
     Active Substance: PHTHALYLSULFATHIAZOLE
     Route: 048
  46. PHTHALYLSULFATHIAZOLE [Concomitant]
     Active Substance: PHTHALYLSULFATHIAZOLE
     Route: 058
  47. PHTHALYLSULFATHIAZOLE [Concomitant]
     Active Substance: PHTHALYLSULFATHIAZOLE
  48. PREDNISONE [Concomitant]
     Active Substance: PREDNISONE
     Indication: Product used for unknown indication
     Route: 048
  49. PREDNISONE [Concomitant]
     Active Substance: PREDNISONE
  50. PREDNISONE [Concomitant]
     Active Substance: PREDNISONE
  51. PREDNISONE [Concomitant]
     Active Substance: PREDNISONE
     Route: 048
  52. PREDNISONE [Concomitant]
     Active Substance: PREDNISONE
     Route: 048
  53. PREDNISONE [Concomitant]
     Active Substance: PREDNISONE
     Route: 048
  54. PREGABALIN [Concomitant]
     Active Substance: PREGABALIN
     Indication: Product used for unknown indication
  55. PSEUDOEPHEDRINE HYDROCHLORIDE [Concomitant]
     Active Substance: PSEUDOEPHEDRINE HYDROCHLORIDE
     Indication: Product used for unknown indication
  56. QUETIAPINE FUMARATE [Concomitant]
     Active Substance: QUETIAPINE FUMARATE
     Indication: Product used for unknown indication
  57. ACETAMINOPHEN\CODEINE PHOSPHATE\METHOCARBAMOL [Concomitant]
     Active Substance: ACETAMINOPHEN\CODEINE PHOSPHATE\METHOCARBAMOL
     Indication: Product used for unknown indication
  58. ACETAMINOPHEN\CODEINE PHOSPHATE\METHOCARBAMOL [Concomitant]
     Active Substance: ACETAMINOPHEN\CODEINE PHOSPHATE\METHOCARBAMOL
  59. DIETARY SUPPLEMENT\HERBALS [Concomitant]
     Active Substance: DIETARY SUPPLEMENT\HERBALS
     Indication: Product used for unknown indication
     Route: 048
  60. SALICYLIC ACID [Concomitant]
     Active Substance: SALICYLIC ACID
     Indication: Product used for unknown indication
  61. DICLOFENAC SODIUM [Concomitant]
     Active Substance: DICLOFENAC SODIUM
     Indication: Product used for unknown indication
  62. DICLOFENAC SODIUM [Concomitant]
     Active Substance: DICLOFENAC SODIUM
  63. DICLOFENAC SODIUM [Concomitant]
     Active Substance: DICLOFENAC SODIUM
  64. DICLOFENAC SODIUM [Concomitant]
     Active Substance: DICLOFENAC SODIUM
  65. DICLOFENAC SODIUM [Concomitant]
     Active Substance: DICLOFENAC SODIUM
  66. DICLOFENAC SODIUM [Concomitant]
     Active Substance: DICLOFENAC SODIUM
  67. MYCOPHENOLATE MOFETIL [Concomitant]
     Active Substance: MYCOPHENOLATE MOFETIL
     Indication: Product used for unknown indication
  68. AMINOSALICYLATE SODIUM [Concomitant]
     Active Substance: AMINOSALICYLATE SODIUM
     Indication: Product used for unknown indication
  69. SULFAMETHOXAZOLE\TRIMETHOPRIM [Concomitant]
     Active Substance: SULFAMETHOXAZOLE\TRIMETHOPRIM
     Indication: Product used for unknown indication
     Route: 067
  70. SULFAMETHOXAZOLE\TRIMETHOPRIM [Concomitant]
     Active Substance: SULFAMETHOXAZOLE\TRIMETHOPRIM
     Route: 067
  71. SULFASALAZINE [Concomitant]
     Active Substance: SULFASALAZINE
     Indication: Product used for unknown indication
     Route: 058
  72. SULFASALAZINE [Concomitant]
     Active Substance: SULFASALAZINE
     Route: 058
  73. SULFASALAZINE [Concomitant]
     Active Substance: SULFASALAZINE
     Route: 058
  74. SULFASALAZINE [Concomitant]
     Active Substance: SULFASALAZINE
     Route: 058
  75. SULFASALAZINE [Concomitant]
     Active Substance: SULFASALAZINE
     Route: 048
  76. SULFASALAZINE [Concomitant]
     Active Substance: SULFASALAZINE
     Route: 058
  77. SULFASALAZINE [Concomitant]
     Active Substance: SULFASALAZINE
     Route: 058
  78. THYMOL [Concomitant]
     Active Substance: THYMOL
     Indication: Product used for unknown indication
     Route: 048
  79. THYMOL [Concomitant]
     Active Substance: THYMOL
     Route: 048
  80. TOCILIZUMAB [Concomitant]
     Active Substance: TOCILIZUMAB
     Indication: Product used for unknown indication
     Route: 058
  81. TOCILIZUMAB [Concomitant]
     Active Substance: TOCILIZUMAB
     Route: 016
  82. TOCILIZUMAB [Concomitant]
     Active Substance: TOCILIZUMAB
     Route: 016
  83. TOCILIZUMAB [Concomitant]
     Active Substance: TOCILIZUMAB
     Route: 042
  84. TOCILIZUMAB [Concomitant]
     Active Substance: TOCILIZUMAB
     Route: 058
  85. TOCILIZUMAB [Concomitant]
     Active Substance: TOCILIZUMAB
     Route: 042
  86. TOCILIZUMAB [Concomitant]
     Active Substance: TOCILIZUMAB
     Route: 042
  87. TOCILIZUMAB [Concomitant]
     Active Substance: TOCILIZUMAB
     Route: 016
  88. TOCILIZUMAB [Concomitant]
     Active Substance: TOCILIZUMAB
  89. TOCILIZUMAB [Concomitant]
     Active Substance: TOCILIZUMAB
     Route: 058
  90. TOCILIZUMAB [Concomitant]
     Active Substance: TOCILIZUMAB
     Route: 042
  91. TOCILIZUMAB [Concomitant]
     Active Substance: TOCILIZUMAB
     Route: 058
  92. TOCILIZUMAB [Concomitant]
     Active Substance: TOCILIZUMAB
     Route: 048
  93. TOFACITINIB CITRATE [Concomitant]
     Active Substance: TOFACITINIB CITRATE
     Indication: Product used for unknown indication
  94. TRAMADOL HYDROCHLORIDE [Concomitant]
     Active Substance: TRAMADOL HYDROCHLORIDE
     Indication: Product used for unknown indication
  95. TRICLOSAN [Concomitant]
     Active Substance: TRICLOSAN
     Indication: Product used for unknown indication
  96. TYROTHRICIN [Concomitant]
     Active Substance: TYROTHRICIN
     Indication: Product used for unknown indication
     Route: 048
  97. TYROTHRICIN [Concomitant]
     Active Substance: TYROTHRICIN
     Route: 048
  98. USTEKINUMAB [Concomitant]
     Active Substance: USTEKINUMAB
     Indication: Product used for unknown indication
     Route: 042
  99. VITAMIN D3 [Concomitant]
     Active Substance: CHOLECALCIFEROL
     Indication: Product used for unknown indication
     Route: 016
  100. VITAMIN D3 [Concomitant]
     Active Substance: CHOLECALCIFEROL
  101. VITAMIN D3 [Concomitant]
     Active Substance: CHOLECALCIFEROL
     Route: 058
  102. XELJANZ [Concomitant]
     Active Substance: TOFACITINIB CITRATE
     Indication: Product used for unknown indication
     Route: 048
  103. XELJANZ [Concomitant]
     Active Substance: TOFACITINIB CITRATE

REACTIONS (1)
  - Death [Fatal]
